FAERS Safety Report 25350406 (Version 3)
Quarter: 2025Q3

REPORT INFORMATION
  Report Type: Report from Study
  Country: US (occurrence: US)
  Receive Date: 20250523
  Receipt Date: 20250704
  Transmission Date: 20251020
  Serious: Yes (Hospitalization)
  Sender: JAZZ
  Company Number: US-JAZZ PHARMACEUTICALS-2025-US-011405

PATIENT
  Sex: Male

DRUGS (39)
  1. XYWAV [Suspect]
     Active Substance: CALCIUM OXYBATE\MAGNESIUM OXYBATE\POTASSIUM OXYBATE\SODIUM OXYBATE
     Indication: Narcolepsy
     Dosage: 9 MILLILITER, BID
     Route: 048
  2. XYWAV [Suspect]
     Active Substance: CALCIUM OXYBATE\MAGNESIUM OXYBATE\POTASSIUM OXYBATE\SODIUM OXYBATE
     Indication: Cataplexy
     Dosage: 4.5 MILLILITER, BID
     Route: 048
  3. XYWAV [Suspect]
     Active Substance: CALCIUM OXYBATE\MAGNESIUM OXYBATE\POTASSIUM OXYBATE\SODIUM OXYBATE
     Indication: Somnolence
  4. ADDERALL [Concomitant]
     Active Substance: AMPHETAMINE ASPARTATE\AMPHETAMINE SULFATE\DEXTROAMPHETAMINE SACCHARATE\DEXTROAMPHETAMINE SULFATE
     Dates: start: 20110101
  5. FLONASE ALLERGY RELIEF [Concomitant]
     Active Substance: FLUTICASONE PROPIONATE
     Dates: start: 20090101
  6. VESICARE [Concomitant]
     Active Substance: SOLIFENACIN SUCCINATE
     Dosage: 10, QD
     Dates: start: 20090101
  7. CYMBALTA [Concomitant]
     Active Substance: DULOXETINE HYDROCHLORIDE
     Dosage: 20, QD
     Dates: start: 20090101
  8. FENOFIBRATE [Concomitant]
     Active Substance: FENOFIBRATE
     Dosage: 10, QD
     Dates: start: 20120101
  9. VITAMIN D3 [Concomitant]
     Active Substance: CHOLECALCIFEROL
     Dates: start: 20150701
  10. LEVOTHYROXINE [Concomitant]
     Active Substance: LEVOTHYROXINE
     Dates: start: 20151012
  11. OCUVITE + LUTEIN [Concomitant]
     Dates: start: 20160401
  12. MAGNESIUM MALATE [Concomitant]
     Active Substance: MAGNESIUM MALATE
     Dates: start: 20160401
  13. POLY-IRON [FERROUS GLUCONATE] [Concomitant]
     Dates: start: 20160401
  14. METAXALONE [Concomitant]
     Active Substance: METAXALONE
     Dates: start: 20120101
  15. MORPHINE SULFATE [Concomitant]
     Active Substance: MORPHINE SULFATE
     Dates: start: 20200601
  16. MORPHINE SULFATE [Concomitant]
     Active Substance: MORPHINE SULFATE
     Dates: start: 20190601
  17. ALBUTEROL SULFATE [Concomitant]
     Active Substance: ALBUTEROL SULFATE
     Dates: start: 20170101
  18. ELIQUIS [Concomitant]
     Active Substance: APIXABAN
     Dates: start: 20191201
  19. PANTOPRAZOLE SODIUM [Concomitant]
     Active Substance: PANTOPRAZOLE SODIUM
     Dates: start: 20200101
  20. MYCOPHENOLIC ACID [Concomitant]
     Active Substance: MYCOPHENOLIC ACID
     Dates: start: 20190301
  21. COLCHICINE [Concomitant]
     Active Substance: COLCHICINE
     Dates: start: 20180101
  22. PROAIR HFA [Concomitant]
     Active Substance: ALBUTEROL SULFATE
     Dates: start: 20180101
  23. ROPINIROLE HYDROCHLORIDE [Concomitant]
     Active Substance: ROPINIROLE HYDROCHLORIDE
     Dates: start: 20250414
  24. GEMTESA [Concomitant]
     Active Substance: VIBEGRON
     Dates: start: 20250414
  25. BONIVA [Concomitant]
     Active Substance: IBANDRONATE SODIUM
     Indication: Product used for unknown indication
     Dates: start: 20250514
  26. REXULTI [Concomitant]
     Active Substance: BREXPIPRAZOLE
     Indication: Product used for unknown indication
     Dates: start: 20250514
  27. TESTOSTERONE CYPIONATE [Concomitant]
     Active Substance: TESTOSTERONE CYPIONATE
     Indication: Product used for unknown indication
     Dates: start: 20250601
  28. FENTANYL ACTAVIS [FENTANYL CITRATE] [Concomitant]
     Indication: Product used for unknown indication
  29. HYDROMORPHONE [Concomitant]
     Active Substance: HYDROMORPHONE
     Indication: Product used for unknown indication
  30. AZELASTINE [Concomitant]
     Active Substance: AZELASTINE
     Indication: Product used for unknown indication
  31. FLUTICASONE PROPIONATE [Concomitant]
     Active Substance: FLUTICASONE PROPIONATE
     Indication: Product used for unknown indication
  32. NARCAN NEONATAL [Concomitant]
     Indication: Product used for unknown indication
  33. MELOXICAM [Concomitant]
     Active Substance: MELOXICAM
     Indication: Product used for unknown indication
  34. TREANDA [Concomitant]
     Active Substance: BENDAMUSTINE HYDROCHLORIDE
     Indication: Product used for unknown indication
  35. DOXEPIN HYDROCHLORIDE [Concomitant]
     Active Substance: DOXEPIN HYDROCHLORIDE
     Indication: Product used for unknown indication
  36. LYSINE [Concomitant]
     Active Substance: LYSINE
     Indication: Product used for unknown indication
  37. ABILIFY [Concomitant]
     Active Substance: ARIPIPRAZOLE
     Indication: Product used for unknown indication
  38. DICLOFENAC SODIUM [Concomitant]
     Active Substance: DICLOFENAC SODIUM
  39. MORNIFLUMATE [Concomitant]
     Active Substance: MORNIFLUMATE
     Indication: Product used for unknown indication

REACTIONS (5)
  - Abdominal pain upper [Recovering/Resolving]
  - Limb injury [Unknown]
  - Animal bite [Unknown]
  - Localised infection [Unknown]
  - Product administration interrupted [Unknown]
